FAERS Safety Report 6832268-6 (Version None)
Quarter: 2010Q3

REPORT INFORMATION
  Report Type: 
  Country: None (occurrence: None)
  Receive Date: 20100712
  Receipt Date: 20100707
  Transmission Date: 20110219
  Serious: Yes (Other)
  Sender: FDA-Public Use
  Company Number: CHPA2010US11168

PATIENT
  Age: 54 Month
  Sex: Male
  Weight: 19.048 kg

DRUGS (1)
  1. EX-LAX ULTRA LAXATIVE PILLS (NCH) [Suspect]
     Dosage: 4 TO 5 PILLS, ONCE/SINGLE
     Route: 048
     Dates: start: 20100706, end: 20100706

REACTIONS (6)
  - ABASIA [None]
  - ACCIDENTAL DRUG INTAKE BY CHILD [None]
  - ACCIDENTAL OVERDOSE [None]
  - ASTHENIA [None]
  - DEHYDRATION [None]
  - DIARRHOEA [None]
